FAERS Safety Report 9820509 (Version 1)
Quarter: 2014Q1

REPORT INFORMATION
  Report Type: Spontaneous
  Country: US (occurrence: US)
  Receive Date: 20140116
  Receipt Date: 20140116
  Transmission Date: 20141002
  Serious: Yes (Other)
  Sender: FDA-Public Use
  Company Number: US-PFIZER INC-2014011226

PATIENT
  Sex: Male

DRUGS (3)
  1. LYRICA [Suspect]
     Indication: NEURALGIA
     Dosage: 75- 100 MG, DAILY
  2. LYRICA [Suspect]
     Dosage: 75 MG, 2X/DAY
     Dates: end: 201401
  3. PERCOCET [Concomitant]
     Dosage: UNK

REACTIONS (8)
  - Intervertebral disc disorder [Unknown]
  - Fatigue [Unknown]
  - Feeling abnormal [Unknown]
  - Decreased appetite [Unknown]
  - Asthenia [Unknown]
  - Nausea [Recovering/Resolving]
  - Dizziness [Recovering/Resolving]
  - Diarrhoea [Recovering/Resolving]
